FAERS Safety Report 24251491 (Version 1)
Quarter: 2024Q3

REPORT INFORMATION
  Report Type: Spontaneous
  Country: US (occurrence: US)
  Receive Date: 20240826
  Receipt Date: 20240826
  Transmission Date: 20241016
  Serious: No
  Sender: ABBVIE
  Company Number: US-ABBVIE-5889041

PATIENT

DRUGS (3)
  1. HUMIRA [Suspect]
     Active Substance: ADALIMUMAB
     Indication: Psoriasis
     Route: 058
  2. RINVOQ [Suspect]
     Active Substance: UPADACITINIB
     Indication: Psoriasis
     Route: 048
  3. INFLECTRA [Suspect]
     Active Substance: INFLIXIMAB-DYYB
     Indication: Psoriasis
     Route: 065

REACTIONS (11)
  - Arthralgia [Unknown]
  - Flatulence [Unknown]
  - Psoriasis [Unknown]
  - Therapeutic response unexpected [Unknown]
  - Drug ineffective [Unknown]
  - Alopecia areata [Unknown]
  - Rash [Unknown]
  - Defaecation urgency [Not Recovered/Not Resolved]
  - Mouth ulceration [Unknown]
  - Haemorrhage [Unknown]
  - Flushing [Unknown]
